FAERS Safety Report 20083497 (Version 3)
Quarter: 2021Q4

REPORT INFORMATION
  Report Type: Report from Study
  Country: US (occurrence: US)
  Receive Date: 20211118
  Receipt Date: 20211130
  Transmission Date: 20220303
  Serious: No
  Sender: FDA-Public Use
  Company Number: US-NOVARTISTESTPH-NVSC2018US021094

PATIENT
  Sex: Male
  Weight: 84.82 kg

DRUGS (3)
  1. LUTATHERA [Suspect]
     Active Substance: LUTETIUM OXODOTREOTIDE LU-177
     Indication: Neuroendocrine carcinoma
     Dosage: UNK
     Route: 065
     Dates: start: 20180329
  2. IBUPROFEN [Suspect]
     Active Substance: IBUPROFEN
     Indication: Product used for unknown indication
     Dosage: UNK
     Route: 065
  3. OXYCODONE AND ACETAMINOPHEN [Suspect]
     Active Substance: ACETAMINOPHEN\OXYCODONE HYDROCHLORIDE
     Indication: Product used for unknown indication
     Dosage: UNK (10/325 MG)
     Route: 065

REACTIONS (19)
  - Benign bone neoplasm [Unknown]
  - Head discomfort [Unknown]
  - Increased appetite [Unknown]
  - Pain [Unknown]
  - Weight increased [Unknown]
  - Fatigue [Unknown]
  - Pyrexia [Unknown]
  - Diarrhoea [Unknown]
  - Back pain [Unknown]
  - Arthralgia [Unknown]
  - Dyspnoea [Unknown]
  - Initial insomnia [Unknown]
  - Asthenia [Unknown]
  - Depression [Unknown]
  - Gait disturbance [Unknown]
  - General physical health deterioration [Unknown]
  - Illness [Unknown]
  - Overweight [Unknown]
  - Cough [Unknown]
